FAERS Safety Report 5576150-3 (Version None)
Quarter: 2007Q4

REPORT INFORMATION
  Report Type: 
  Country: None (occurrence: None)
  Receive Date: 20071226
  Receipt Date: 20071210
  Transmission Date: 20080405
  Serious: Yes (Life-Threatening, Hospitalization)
  Sender: FDA-Public Use
  Company Number: ADE2007-0085

PATIENT
  Age: 68 Year
  Sex: Female
  Weight: 60 kg

DRUGS (10)
  1. ATENOLOL [Suspect]
     Indication: HYPERTENSION
     Dosage: 100MG - DAILY- PO
     Route: 048
     Dates: end: 20071024
  2. CO-AMILOFRUSE [Suspect]
     Indication: HYPERTENSION
     Dosage: 1DF- PO
     Dates: end: 20071024
  3. NIFEDIPINE [Suspect]
     Indication: HYPERTENSION
     Dosage: 90MG- DAILY-PO
     Route: 048
     Dates: end: 20071024
  4. AMITRIPTYLINE HCL [Concomitant]
  5. ASPIRIN 75M [Concomitant]
  6. ATORVASTATIN CALCIUM [Concomitant]
  7. CO-PROXAMOL [Concomitant]
  8. GLIBENCLAMIDE 20MG [Concomitant]
  9. IBUPROFEN  INSULATARD 5IU [Concomitant]
  10. METFORMIN 2550MG [Concomitant]

REACTIONS (4)
  - ATRIOVENTRICULAR BLOCK COMPLETE [None]
  - BRADYCARDIA [None]
  - HYPOTENSION [None]
  - LACTIC ACIDOSIS [None]
